FAERS Safety Report 17357361 (Version 1)
Quarter: 2020Q1

REPORT INFORMATION
  Report Type: Spontaneous
  Country: US (occurrence: US)
  Receive Date: 20200131
  Receipt Date: 20200131
  Transmission Date: 20200409
  Serious: Yes (Other)
  Sender: FDA-Public Use
  Company Number: US-009507513-2001USA011515

PATIENT
  Sex: Female
  Weight: 86.1 kg

DRUGS (1)
  1. NEXPLANON [Suspect]
     Active Substance: ETONOGESTREL
     Indication: CONTRACEPTION
     Dosage: 1 IMPLANT IN THE LEFT ARM (3 YEAR REMOVAL DATE)
     Route: 059
     Dates: start: 20180414

REACTIONS (4)
  - Circumstance or information capable of leading to medication error [Unknown]
  - Implant site bruising [Not Recovered/Not Resolved]
  - Device dislocation [Not Recovered/Not Resolved]
  - Implant site pain [Not Recovered/Not Resolved]
